FAERS Safety Report 6418381-6 (Version None)
Quarter: 2009Q4

REPORT INFORMATION
  Report Type: 
  Country: None (occurrence: None)
  Receive Date: 20091021
  Receipt Date: 20090629
  Transmission Date: 20100525
  Serious: No
  Sender: FDA-Public Use
  Company Number: ALL1-2009-01775

PATIENT
  Age: 24 Year
  Sex: Male

DRUGS (1)
  1. VYVANSE [Suspect]
     Dosage: 20 MG, 1X/DAY;QD;ORAL
     Route: 048

REACTIONS (2)
  - HEADACHE [None]
  - REBOUND EFFECT [None]
